FAERS Safety Report 6999577-1 (Version None)
Quarter: 2010Q3

REPORT INFORMATION
  Report Type: 
  Country: None (occurrence: None)
  Receive Date: 20100920
  Receipt Date: 20070605
  Transmission Date: 20110219
  Serious: Yes (Hospitalization)
  Sender: FDA-Public Use
  Company Number: US-ASTRAZENECA-2006UW24092

PATIENT
  Age: 14833 Day
  Sex: Female
  Weight: 76.7 kg

DRUGS (11)
  1. SEROQUEL [Suspect]
     Indication: SCHIZOPHRENIA
     Dosage: 300MG TO 400MG
     Route: 048
     Dates: start: 19980110
  2. SEROQUEL [Suspect]
     Indication: DEPRESSION
     Dosage: 300MG TO 400MG
     Route: 048
     Dates: start: 19980110
  3. SEROQUEL [Suspect]
     Route: 048
  4. SEROQUEL [Suspect]
     Route: 048
  5. RISPERDAL [Suspect]
     Dates: start: 20050606
  6. ZYPREXA [Suspect]
     Dosage: 10MG TO 20MG, AT NIGHT
     Dates: start: 19990802
  7. EFFEXOR [Concomitant]
     Dates: start: 20001121
  8. CLOZARIL [Concomitant]
     Dosage: 25MG TO 100MG, TWO AT NIGHT
     Dates: start: 19940415
  9. LOXAPINE SUCCINATE [Concomitant]
     Dates: start: 20000622
  10. DEPAKOTE [Concomitant]
     Dosage: 250MG, ONE TAB IN MORNING AND TWO TABS AT NIGHT
     Dates: start: 20000622
  11. HALDOL [Concomitant]
     Dosage: 25MG TO 37.5MG
     Route: 030
     Dates: start: 20020621

REACTIONS (2)
  - PANCREATITIS [None]
  - PANCREATITIS ACUTE [None]
